FAERS Safety Report 7930863-4 (Version None)
Quarter: 2011Q4

REPORT INFORMATION
  Report Type: 
  Country: None (occurrence: None)
  Receive Date: 20111121
  Receipt Date: 20111116
  Transmission Date: 20120403
  Serious: Yes (Hospitalization)
  Sender: FDA-Public Use
  Company Number: US-ACTELION-A-NJ2011-57220

PATIENT

DRUGS (2)
  1. VENTAVIS [Suspect]
     Indication: PULMONARY ARTERIAL HYPERTENSION
     Dosage: 2.5 ?G, QID
     Route: 055
     Dates: start: 20100216
  2. REVATIO [Concomitant]

REACTIONS (3)
  - BRONCHIOLITIS [None]
  - BRONCHITIS [None]
  - CARDIAC FAILURE CONGESTIVE [None]
